FAERS Safety Report 6560386-9 (Version None)
Quarter: 2010Q1

REPORT INFORMATION
  Report Type: 
  Country: None (occurrence: None)
  Receive Date: 20100129
  Receipt Date: 20091026
  Transmission Date: 20100710
  Serious: No
  Sender: FDA-Public Use
  Company Number: US-ABBOTT-09P-163-0598951-00

PATIENT
  Sex: Female

DRUGS (14)
  1. HUMIRA [Suspect]
     Indication: RHEUMATOID ARTHRITIS
     Dates: start: 20090801
  2. VOLTAREN-XR [Concomitant]
     Indication: ARTHRALGIA
     Dates: start: 19990101
  3. B STRESS COMPLEX [Concomitant]
     Indication: VITAMIN SUPPLEMENTATION
  4. LOVAZA [Concomitant]
     Indication: MEDICAL DIET
  5. LORTAB [Concomitant]
     Indication: ARTHRALGIA
  6. POTASSIUM [Concomitant]
     Indication: MINERAL SUPPLEMENTATION
  7. CALCIUM W/MAGNESIUM/VITAMIN D [Concomitant]
     Indication: MINERAL SUPPLEMENTATION
  8. CALCIUM W/MAGNESIUM/VITAMIN D [Concomitant]
  9. CALCIUM W/MAGNESIUM/VITAMIN D [Concomitant]
     Indication: VITAMIN SUPPLEMENTATION
  10. ACIDOPHILUS [Concomitant]
     Indication: MEDICAL DIET
  11. COQ-10 [Concomitant]
     Indication: VITAMIN SUPPLEMENTATION
  12. VITAMIN C [Concomitant]
     Indication: VITAMIN SUPPLEMENTATION
  13. PARAFIN WAX [Concomitant]
     Indication: ARTHRALGIA
     Route: 061
  14. B ENERGY COMPLEX [Concomitant]
     Indication: MEDICAL DIET

REACTIONS (6)
  - DYSGEUSIA [None]
  - FATIGUE [None]
  - MUSCULOSKELETAL PAIN [None]
  - OEDEMA PERIPHERAL [None]
  - PAIN IN EXTREMITY [None]
  - SINUS OPERATION [None]
